FAERS Safety Report 7112249-8 (Version None)
Quarter: 2010Q4

REPORT INFORMATION
  Report Type: 
  Country: None (occurrence: None)
  Receive Date: 20101119
  Receipt Date: 20100426
  Transmission Date: 20110411
  Serious: No
  Sender: FDA-Public Use
  Company Number: A0856750A

PATIENT
  Age: 69 Year
  Sex: Male

DRUGS (3)
  1. AVODART [Suspect]
     Dosage: .5MG PER DAY
     Route: 048
     Dates: start: 20100125
  2. DOXAZOSIN MESYLATE [Concomitant]
  3. CELEBREX [Concomitant]
     Dates: start: 20100426

REACTIONS (2)
  - DRUG INEFFECTIVE [None]
  - PROSTATITIS [None]
